FAERS Safety Report 9908311 (Version 1)
Quarter: 2014Q1

REPORT INFORMATION
  Report Type: Spontaneous
  Country: US (occurrence: None)
  Receive Date: 20140214
  Receipt Date: 20140214
  Transmission Date: 20141002
  Serious: Yes (Hospitalization)
  Sender: FDA-Public Use
  Company Number: None

PATIENT
  Age: 73 Year
  Sex: Male
  Weight: 84 kg

DRUGS (9)
  1. BACLOFEN [Suspect]
     Indication: BIPOLAR DISORDER
     Dosage: RECENT
  2. CARVEDILOL [Concomitant]
  3. SIMVASTATIN [Concomitant]
  4. DOCUSATE [Concomitant]
  5. LASIX [Concomitant]
  6. DEPAKOTE [Concomitant]
  7. FERROUS SULFATE [Concomitant]
  8. ZANTAC [Concomitant]
  9. ECASA [Concomitant]

REACTIONS (5)
  - Encephalopathy [None]
  - Parkinsonism [None]
  - Condition aggravated [None]
  - Confusional state [None]
  - Muscle rigidity [None]
